FAERS Safety Report 7538643-9 (Version None)
Quarter: 2011Q2

REPORT INFORMATION
  Report Type: 
  Country: None (occurrence: None)
  Receive Date: 20110610
  Receipt Date: 20110531
  Transmission Date: 20111010
  Serious: No
  Sender: FDA-Public Use
  Company Number: US-BIOGENIDEC-2011BI020178

PATIENT
  Age: 37 Year
  Sex: Female

DRUGS (1)
  1. AVONEX [Suspect]
     Indication: MULTIPLE SCLEROSIS
     Route: 030
     Dates: start: 20090901

REACTIONS (9)
  - GALLBLADDER DISORDER [None]
  - GAIT DISTURBANCE [None]
  - VOMITING [None]
  - DYSSTASIA [None]
  - TRIGEMINAL NEURALGIA [None]
  - BALANCE DISORDER [None]
  - MUSCLE TWITCHING [None]
  - VISION BLURRED [None]
  - NAUSEA [None]
